FAERS Safety Report 7677108-0 (Version None)
Quarter: 2011Q3

REPORT INFORMATION
  Report Type: 
  Country: None (occurrence: None)
  Receive Date: 20110811
  Receipt Date: 20110803
  Transmission Date: 20111222
  Serious: Yes (Other)
  Sender: FDA-Public Use
  Company Number: VE-ROCHE-794543

PATIENT
  Sex: Female
  Weight: 44 kg

DRUGS (6)
  1. GRANOCYTE [Concomitant]
     Dates: start: 20101218
  2. OXALIPLATIN [Concomitant]
     Indication: COLORECTAL CANCER
     Dosage: FREQUENCY: CYCLIC
     Route: 042
     Dates: start: 20101218
  3. AVASTIN [Suspect]
     Indication: COLORECTAL CANCER
     Dosage: FREQUENCY: DAILY
     Route: 042
     Dates: start: 20101218
  4. XELODA [Suspect]
     Indication: COLORECTAL CANCER
     Dosage: FREQUENCY: DAILY
     Route: 048
     Dates: start: 20101218
  5. EMEND [Concomitant]
     Dates: start: 20101218
  6. XELODA [Suspect]
     Dosage: DOSE LOWERED FROM 5 TABLETS TO 3 TABLETS
     Route: 048

REACTIONS (2)
  - DRY SKIN [None]
  - PALMAR-PLANTAR ERYTHRODYSAESTHESIA SYNDROME [None]
